FAERS Safety Report 7941044-2 (Version None)
Quarter: 2011Q4

REPORT INFORMATION
  Report Type: 
  Country: None (occurrence: None)
  Receive Date: 20111128
  Receipt Date: 20111124
  Transmission Date: 20120403
  Serious: Yes (Other)
  Sender: FDA-Public Use
  Company Number: JP-PFIZER INC-2011233235

PATIENT
  Age: 73 Year
  Sex: Female

DRUGS (6)
  1. LYRICA [Suspect]
     Dosage: 225 MG/DAY
     Route: 048
     Dates: start: 20110125, end: 20110221
  2. LYRICA [Suspect]
     Dosage: 150 MG DAILY
     Dates: start: 20110711, end: 20110724
  3. LYRICA [Suspect]
     Dosage: 75 MG DAILY
     Dates: start: 20110725
  4. LYRICA [Suspect]
     Dosage: 225 MG DAILY
     Route: 048
     Dates: start: 20110531, end: 20110710
  5. LYRICA [Suspect]
     Indication: PAIN
     Dosage: 75 MG, 2X/DAY
     Route: 048
     Dates: start: 20101227, end: 20110124
  6. LYRICA [Suspect]
     Dosage: 300 MG/DAY
     Route: 048
     Dates: start: 20110222, end: 20110530

REACTIONS (1)
  - EYELID PTOSIS [None]
